FAERS Safety Report 6773026-0 (Version None)
Quarter: 2010Q2

REPORT INFORMATION
  Report Type: 
  Country: None (occurrence: None)
  Receive Date: 20100616
  Receipt Date: 20100603
  Transmission Date: 20101027
  Serious: Yes (Other)
  Sender: FDA-Public Use
  Company Number: BE-WYE-G06111810

PATIENT
  Age: 32 Year
  Sex: Male
  Weight: 70 kg

DRUGS (1)
  1. BENEFIX [Suspect]
     Indication: HAEMOPHILIA B WITH ANTI FACTOR IX
     Dosage: NOT PROVIDED
     Route: 042
     Dates: start: 20100509, end: 20100509

REACTIONS (6)
  - ABNORMAL SENSATION IN EYE [None]
  - ANAPHYLACTIC REACTION [None]
  - OCULAR HYPERAEMIA [None]
  - SENSORY DISTURBANCE [None]
  - TACHYCARDIA [None]
  - TENSION [None]
